FAERS Safety Report 12604741 (Version 1)
Quarter: 2016Q3

REPORT INFORMATION
  Report Type: Spontaneous
  Country: US (occurrence: US)
  Receive Date: 20160728
  Receipt Date: 20160728
  Transmission Date: 20161109
  Serious: Yes (Other)
  Sender: FDA-Public Use
  Company Number: ALCN2016US005181

PATIENT
  Age: 2 Month
  Sex: Female

DRUGS (2)
  1. BRIMONIDINE [Suspect]
     Active Substance: BRIMONIDINE TARTRATE
     Indication: INFANTILE HAEMANGIOMA
     Dosage: 2 GTT, BID
     Route: 061
  2. TIMOLOL. [Suspect]
     Active Substance: TIMOLOL
     Indication: INFANTILE HAEMANGIOMA
     Dosage: 2 GTT, BID
     Route: 061

REACTIONS (7)
  - Respiratory depression [Recovered/Resolved]
  - Lethargy [Recovered/Resolved]
  - Product use issue [Recovered/Resolved]
  - Hypotonia [Recovered/Resolved]
  - Hypothermia [Recovered/Resolved]
  - Apnoea [Recovered/Resolved]
  - Drug administered to patient of inappropriate age [Recovered/Resolved]
